FAERS Safety Report 17734117 (Version 3)
Quarter: 2020Q2

REPORT INFORMATION
  Report Type: Report from Study
  Country: US (occurrence: US)
  Receive Date: 20200501
  Receipt Date: 20200623
  Transmission Date: 20200714
  Serious: Yes (Hospitalization, Other)
  Sender: FDA-Public Use
  Company Number: US-AMGEN-USACT2020070976

PATIENT
  Age: 68 Year
  Sex: Male
  Weight: 90.9 kg

DRUGS (12)
  1. XARELTO [Concomitant]
     Active Substance: RIVAROXABAN
     Dosage: UNK
     Dates: start: 20171030
  2. ALBUTEROL [SALBUTAMOL] [Concomitant]
     Active Substance: ALBUTEROL
     Dosage: UNK
     Dates: start: 20170608
  3. CARFILZOMIB [Suspect]
     Active Substance: CARFILZOMIB
     Dosage: 2.13 MILLIGRAM/SQ. METER, PER CHEMO REGIM
     Route: 041
  4. OXYCODONE [Concomitant]
     Active Substance: OXYCODONE
     Dosage: UNK
     Dates: start: 20170610
  5. ATORVASTATIN [Concomitant]
     Active Substance: ATORVASTATIN
     Dosage: UNK
     Dates: start: 20170608
  6. FAMOTIDINE. [Concomitant]
     Active Substance: FAMOTIDINE
     Dosage: UNK
     Dates: start: 20170828
  7. ZANAFLEX [Concomitant]
     Active Substance: TIZANIDINE HYDROCHLORIDE
     Dosage: UNK
     Dates: start: 20170608
  8. IRINOTECAN [Suspect]
     Active Substance: IRINOTECAN
     Indication: NON-SMALL CELL LUNG CANCER METASTATIC
     Dosage: 100 MILLIGRAM/SQ. METER, (210 MILLIGRAM) PER CHEMO REGIM
     Route: 041
     Dates: start: 20180129
  9. MEGESTROL [Concomitant]
     Active Substance: MEGESTROL
     Dosage: UNK
     Dates: start: 20180129
  10. CARFILZOMIB [Suspect]
     Active Substance: CARFILZOMIB
     Indication: NON-SMALL CELL LUNG CANCER METASTATIC
     Dosage: 2.1 MILLIGRAM/SQ. METER, PER CHEMO REGIM
     Route: 041
     Dates: start: 20180129
  11. TAMSULOSIN [Concomitant]
     Active Substance: TAMSULOSIN
     Dosage: UNK
     Dates: start: 20170608
  12. METOPROLOL SUCCINATE. [Concomitant]
     Active Substance: METOPROLOL SUCCINATE
     Dosage: UNK
     Dates: start: 20170608

REACTIONS (3)
  - Encephalopathy [Unknown]
  - Neutropenia [Unknown]
  - Diarrhoea [Unknown]

NARRATIVE: CASE EVENT DATE: 20180318
